FAERS Safety Report 8624813-5 (Version None)
Quarter: 2012Q3

REPORT INFORMATION
  Report Type: 
  Country: None (occurrence: None)
  Receive Date: 20120827
  Receipt Date: 20120816
  Transmission Date: 20120928
  Serious: Yes (Hospitalization, Disabling, Other)
  Sender: FDA-Public Use
  Company Number: US-009507513-1205USA04581

PATIENT

DRUGS (11)
  1. PROAIR HFA [Concomitant]
     Indication: ASTHMA
     Dosage: UNK
     Dates: start: 20070220, end: 20070301
  2. ALENDRONATE SODIUM [Suspect]
     Indication: OSTEOPENIA
     Dosage: 70 MG, QW
     Dates: start: 20080701
  3. VITAMINS (UNSPECIFIED) [Concomitant]
     Dosage: 1 DF, UNK
  4. PROVENTIL-HFA [Concomitant]
     Indication: ASTHMA
     Dosage: UNK
     Dates: start: 20061019, end: 20081101
  5. FOSAMAX [Suspect]
     Indication: OSTEOPENIA
     Dosage: 70 MG, QW
     Route: 048
     Dates: start: 19970101, end: 20080420
  6. ASCORBIC ACID [Concomitant]
     Dosage: 1000 MG, QD
  7. AEROBID [Concomitant]
     Indication: ASTHMA
     Dosage: UNK
     Dates: start: 20051205, end: 20080201
  8. ALBUTEROL [Concomitant]
     Indication: ASTHMA
     Dosage: UNK
  9. FOSAMAX [Suspect]
     Indication: OSTEOPOROSIS
  10. PREMARIN [Concomitant]
     Indication: OSTEOPOROSIS
  11. ALENDRONATE SODIUM [Suspect]
     Indication: OSTEOPOROSIS

REACTIONS (49)
  - OPEN REDUCTION OF FRACTURE [None]
  - POST PROCEDURAL HAEMORRHAGE [None]
  - HAEMORRHAGIC ANAEMIA [None]
  - ASTHENIA [None]
  - UPPER LIMB FRACTURE [None]
  - CARDIAC MURMUR [None]
  - DRUG INEFFECTIVE [None]
  - OSTEOPOROSIS [None]
  - NEUROPATHY PERIPHERAL [None]
  - PAIN [None]
  - FEMUR FRACTURE [None]
  - LOBAR PNEUMONIA [None]
  - SCIATICA [None]
  - VERTEBROPLASTY [None]
  - HYPOKALAEMIA [None]
  - LUMBAR SPINAL STENOSIS [None]
  - MUSCULAR WEAKNESS [None]
  - STRESS FRACTURE [None]
  - HYPONATRAEMIA [None]
  - LEUKOCYTOSIS [None]
  - HYPERTENSIVE CRISIS [None]
  - HYPERTENSION [None]
  - FOOT FRACTURE [None]
  - CYST REMOVAL [None]
  - DEGENERATION OF UTERINE LEIOMYOMA [None]
  - PERIORBITAL HAEMORRHAGE [None]
  - SURGERY [None]
  - FALL [None]
  - OSTEOARTHRITIS [None]
  - INFLAMMATION [None]
  - WRIST FRACTURE [None]
  - PELVIC FRACTURE [None]
  - INSOMNIA [None]
  - HYPOTHYROIDISM [None]
  - SPINAL CLAUDICATION [None]
  - WRIST SURGERY [None]
  - COMPRESSION FRACTURE [None]
  - BONE DENSITY DECREASED [None]
  - ANXIETY [None]
  - HYPERLIPIDAEMIA [None]
  - CONFUSIONAL STATE [None]
  - MUSCLE SPASMS [None]
  - CERVICAL POLYP [None]
  - ROAD TRAFFIC ACCIDENT [None]
  - DEPRESSION [None]
  - HYPERTONIC BLADDER [None]
  - CONTUSION [None]
  - PUBIS FRACTURE [None]
  - AORTIC STENOSIS [None]
